FAERS Safety Report 12482310 (Version 3)
Quarter: 2016Q4

REPORT INFORMATION
  Report Type: Spontaneous
  Country: DE (occurrence: DE)
  Receive Date: 20160620
  Receipt Date: 20161021
  Transmission Date: 20170207
  Serious: Yes (Life-Threatening, Hospitalization)
  Sender: FDA-Public Use
  Company Number: PHHY2016DE083581

PATIENT
  Age: 56 Year
  Sex: Male
  Weight: 98 kg

DRUGS (8)
  1. ENTRESTO [Suspect]
     Active Substance: SACUBITRIL\VALSARTAN
     Indication: CARDIAC FAILURE
     Dosage: DAILY DOSE: 2 DF DOSAGE FORM EVERY DAYS(98 DF DOSAGE FORM (1 DF,DOSAGE FORM, 2 IN 1 DAY))
     Route: 048
     Dates: start: 20160411
  2. EPLERENONE. [Concomitant]
     Active Substance: EPLERENONE
     Indication: CARDIAC FAILURE
     Dosage: 25 MG, QD EVERY DAY
     Route: 048
  3. DUOPLAVIN [Concomitant]
     Active Substance: ASPIRIN\CLOPIDOGREL
     Indication: CORONARY ARTERY DISEASE
     Dosage: 1 DF, QD 1 DF DOSAGE FORM EVERY DAY
     Route: 048
  4. QUETIAPIN [Concomitant]
     Active Substance: QUETIAPINE
     Indication: PRODUCT USED FOR UNKNOWN INDICATION
     Dosage: 50 MG, UNK
     Route: 048
  5. VENLAFAXIN [Concomitant]
     Active Substance: VENLAFAXINE HYDROCHLORIDE
     Indication: PRODUCT USED FOR UNKNOWN INDICATION
     Dosage: 75 MG, UNK
     Route: 048
  6. TRIMIPRAMIN AL//TRIMIPRAMINE MALEATE [Concomitant]
     Indication: PRODUCT USED FOR UNKNOWN INDICATION
     Dosage: 100 MG, UNK
     Route: 048
  7. METFORMIN [Concomitant]
     Active Substance: METFORMIN HYDROCHLORIDE
     Indication: DIABETES MELLITUS
     Dosage: 500 MG, QD EVERY DAY
     Route: 048
  8. OPIPRAMOL [Concomitant]
     Active Substance: OPIPRAMOL
     Indication: PRODUCT USED FOR UNKNOWN INDICATION
     Dosage: 150 MG, UNK
     Route: 048

REACTIONS (1)
  - Pulmonary embolism [Recovering/Resolving]

NARRATIVE: CASE EVENT DATE: 20160529
